FAERS Safety Report 4840573-8 (Version None)
Quarter: 2005Q4

REPORT INFORMATION
  Report Type: 
  Country: None (occurrence: None)
  Receive Date: 20051130
  Receipt Date: 20051024
  Transmission Date: 20060501
  Serious: No
  Sender: FDA-Public Use
  Company Number: US-BRISTOL-MYERS SQUIBB COMPANY-13155353

PATIENT
  Age: 41 Year
  Sex: Female
  Weight: 77 kg

DRUGS (4)
  1. ERBITUX [Suspect]
     Indication: COLON CANCER METASTATIC
     Route: 042
     Dates: start: 20051010, end: 20051010
  2. ALOXI [Concomitant]
     Indication: PREMEDICATION
     Dates: start: 20051010, end: 20051010
  3. DEXAMETHASONE [Concomitant]
     Indication: PREMEDICATION
     Dates: start: 20051010, end: 20051010
  4. BENADRYL [Concomitant]
     Indication: PREMEDICATION
     Dates: start: 20051010, end: 20051010

REACTIONS (1)
  - DERMATITIS ACNEIFORM [None]
